FAERS Safety Report 4450523-4 (Version None)
Quarter: 2004Q3

REPORT INFORMATION
  Report Type: 
  Country: None (occurrence: None)
  Receive Date: 20040913
  Receipt Date: 20040510
  Transmission Date: 20050211
  Serious: No
  Sender: FDA-Public Use
  Company Number: 2004-BP-03265BP(1)

PATIENT
  Age: 66 Year
  Sex: Male

DRUGS (11)
  1. SPIRIVA [Suspect]
     Indication: CHRONIC OBSTRUCTIVE AIRWAYS DISEASE
     Dosage: 18 MCG (18 MCG, 1 PUFF OD (ONE DOSE), IH
     Route: 055
     Dates: start: 20040426
  2. FE (TEGAFUR) [Concomitant]
  3. GLIPIZIDE [Concomitant]
  4. KCL (POTASSIUM CHLORIDE) [Concomitant]
  5. ACETYLSALICYLIC ACID SRT [Concomitant]
  6. METOPROLOL TARTRATE [Concomitant]
  7. METRONIDAZOLE (MERONIDAZOLE) [Concomitant]
  8. PHOSLO [Concomitant]
  9. NITR-BID (GLYCERYL TRINITRATE) [Concomitant]
  10. PROTONIX [Concomitant]
  11. LASIX (LASIX) [Concomitant]

REACTIONS (1)
  - DYSKINESIA [None]
